FAERS Safety Report 24459308 (Version 1)
Quarter: 2024Q4

REPORT INFORMATION
  Report Type: Other
  Country: US (occurrence: US)
  Receive Date: 20241018
  Receipt Date: 20241018
  Transmission Date: 20250114
  Serious: Yes (Hospitalization)
  Sender: ANI
  Company Number: US-ANIPHARMA-012534

PATIENT
  Age: 46 Year
  Sex: Male

DRUGS (13)
  1. LORAZEPAM [Suspect]
     Active Substance: LORAZEPAM
     Indication: Delirium tremens
  2. PHENYTOIN [Concomitant]
     Active Substance: PHENYTOIN
     Indication: Delirium tremens
  3. DEXMEDETOMIDINE [Concomitant]
     Active Substance: DEXMEDETOMIDINE
     Indication: Delirium tremens
  4. THIAMINE [Concomitant]
     Active Substance: THIAMINE
     Indication: Delirium tremens
  5. PROPOFOL [Concomitant]
     Active Substance: PROPOFOL
     Indication: Agitation
  6. MIDAZOLAM [Concomitant]
     Active Substance: MIDAZOLAM
     Indication: Agitation
  7. PROPOFOL [Concomitant]
     Active Substance: PROPOFOL
     Indication: Agitation
     Dosage: DECREASED
  8. LORAZEPAM [Suspect]
     Active Substance: LORAZEPAM
     Indication: Delirium tremens
  9. DEXMEDETOMIDINE [Concomitant]
     Active Substance: DEXMEDETOMIDINE
     Indication: Delirium tremens
     Dosage: DOSE DECREASED
  10. LORAZEPAM [Suspect]
     Active Substance: LORAZEPAM
     Indication: Delirium tremens
     Dosage: DOSE WERE DECREASED
  11. LORAZEPAM [Suspect]
     Active Substance: LORAZEPAM
     Indication: Delirium tremens
  12. DEXMEDETOMIDINE [Concomitant]
     Active Substance: DEXMEDETOMIDINE
     Indication: Delirium tremens
     Dosage: DOSE INCREASED
  13. PHENYTOIN [Concomitant]
     Active Substance: PHENYTOIN
     Indication: Delirium tremens

REACTIONS (2)
  - Rebound effect [Recovering/Resolving]
  - Withdrawal syndrome [Recovering/Resolving]
